FAERS Safety Report 7552732-4 (Version None)
Quarter: 2011Q2

REPORT INFORMATION
  Report Type: 
  Country: None (occurrence: None)
  Receive Date: 20110616
  Receipt Date: 20110225
  Transmission Date: 20111010
  Serious: No
  Sender: FDA-Public Use
  Company Number: US-MYLANLABS-2011S1004108

PATIENT
  Age: 47 Year
  Sex: Female

DRUGS (1)
  1. DOXEPIN HYDROCHLORIDE [Suspect]
     Indication: AFFECT LABILITY
     Route: 048
     Dates: end: 20110224

REACTIONS (3)
  - PRURITUS [None]
  - HYPERSENSITIVITY [None]
  - URTICARIA [None]
